FAERS Safety Report 15490346 (Version 1)
Quarter: 2018Q4

REPORT INFORMATION
  Report Type: Spontaneous
  Country: PL (occurrence: PL)
  Receive Date: 20181011
  Receipt Date: 20181011
  Transmission Date: 20190205
  Serious: Yes (Other)
  Sender: FDA-Public Use
  Company Number: PHHY2018PL003852

PATIENT
  Age: 32 Year
  Sex: Female

DRUGS (3)
  1. NITRENDIPINE [Suspect]
     Active Substance: NITRENDIPINE
     Indication: HYPERTENSION
     Dosage: 2X15 MG
     Route: 065
  2. BUDESONIDE. [Suspect]
     Active Substance: BUDESONIDE
     Indication: CROHN^S DISEASE
     Dosage: 3 MG, QD
     Route: 048
  3. METOPROLOL. [Suspect]
     Active Substance: METOPROLOL
     Indication: HYPERTENSION
     Dosage: 50 MG, QD
     Route: 065

REACTIONS (3)
  - Maternal exposure during breast feeding [Unknown]
  - Proteinuria [Unknown]
  - Maternal exposure during pregnancy [Unknown]
